FAERS Safety Report 23042310 (Version 1)
Quarter: 2023Q4

REPORT INFORMATION
  Report Type: Spontaneous
  Country: US (occurrence: US)
  Receive Date: 20231008
  Receipt Date: 20231008
  Transmission Date: 20240110
  Serious: Yes (Hospitalization)
  Sender: FDA-Public Use
  Company Number: US-STRIDES ARCOLAB LIMITED-2023SP015106

PATIENT
  Age: 79 Year
  Sex: Male

DRUGS (3)
  1. TACROLIMUS [Interacting]
     Active Substance: TACROLIMUS
     Indication: Prophylaxis against graft versus host disease
     Dosage: UNK, DAILY
     Route: 065
  2. MYCOPHENOLATE MOFETIL [Suspect]
     Active Substance: MYCOPHENOLATE MOFETIL
     Indication: Prophylaxis against graft versus host disease
     Dosage: UNK, DAILY
     Route: 065
  3. PAXLOVID [Interacting]
     Active Substance: NIRMATRELVIR\RITONAVIR
     Indication: COVID-19
     Dosage: UNK
     Route: 065

REACTIONS (4)
  - Drug interaction [Unknown]
  - Acute kidney injury [Unknown]
  - Toxicity to various agents [Recovered/Resolved]
  - COVID-19 [Unknown]
